FAERS Safety Report 8597940-9 (Version None)
Quarter: 2012Q3

REPORT INFORMATION
  Report Type: 
  Country: None (occurrence: None)
  Receive Date: 20120816
  Receipt Date: 20120808
  Transmission Date: 20120928
  Serious: Yes (Hospitalization)
  Sender: FDA-Public Use
  Company Number: US-BAYER-2012-056754

PATIENT
  Age: 29 Year
  Sex: Female

DRUGS (5)
  1. NAPROSYN [Concomitant]
     Indication: PAIN
  2. VICODIN [Concomitant]
     Indication: PAIN
     Dosage: 5-500 MG 1 TO 2 AT BEDTIME PRN (INTERPRETED AS AS NEEDED)
     Route: 048
     Dates: start: 20110512
  3. YASMIN [Suspect]
     Indication: ACNE
     Dosage: UNK
     Dates: start: 20100901, end: 20110501
  4. NAPROSYN [Concomitant]
     Indication: INFLAMMATION
     Dosage: 500 MG, 1 TABLET EVERY 12 HOURS
     Route: 048
     Dates: start: 20110512, end: 20110601
  5. FLEXERIL [Concomitant]
     Indication: MUSCLE SPASMS
     Dosage: 10 MG, TID PRN
     Route: 048

REACTIONS (4)
  - DEEP VEIN THROMBOSIS [None]
  - INJURY [None]
  - PULMONARY EMBOLISM [None]
  - PAIN [None]
